FAERS Safety Report 23458954 (Version 1)
Quarter: 2024Q1

REPORT INFORMATION
  Report Type: Spontaneous
  Country: US (occurrence: US)
  Receive Date: 20240131
  Receipt Date: 20240131
  Transmission Date: 20240410
  Serious: Yes (Hospitalization)
  Sender: FDA-Public Use
  Company Number: US-JNJFOC-20240150497

PATIENT
  Age: 66 Year
  Sex: Male

DRUGS (2)
  1. TREMFYA [Suspect]
     Active Substance: GUSELKUMAB
     Indication: Psoriasis
     Route: 065
     Dates: start: 20231012
  2. TREMFYA [Suspect]
     Active Substance: GUSELKUMAB
     Dosage: SECOND DOSE
     Route: 065
     Dates: start: 20231110

REACTIONS (7)
  - Sepsis [Recovered/Resolved]
  - Fatigue [Not Recovered/Not Resolved]
  - Dyspnoea [Unknown]
  - Dyskinesia [Unknown]
  - Tremor [Unknown]
  - Cellulitis [Not Recovered/Not Resolved]
  - Ear infection viral [Unknown]

NARRATIVE: CASE EVENT DATE: 20231211
